FAERS Safety Report 7931768-5 (Version None)
Quarter: 2011Q4

REPORT INFORMATION
  Report Type: 
  Country: None (occurrence: None)
  Receive Date: 20111121
  Receipt Date: 20111116
  Transmission Date: 20120403
  Serious: Yes (Life-Threatening, Hospitalization)
  Sender: FDA-Public Use
  Company Number: PHHY2011JP097188

PATIENT
  Age: 22 Year
  Sex: Female
  Weight: 67 kg

DRUGS (6)
  1. TEGRETOL [Interacting]
     Dosage: 300 MG, DAILY
     Route: 048
     Dates: start: 20110926, end: 20110930
  2. ALCOHOL [Interacting]
     Dosage: UNK UKN, UNK
  3. TEGRETOL [Interacting]
     Dosage: 200 MG, DAILY
     Route: 048
     Dates: start: 20111001
  4. EVE A [Concomitant]
     Dosage: 2 DF,  2 TABLETS DAILY, 20 DAYS PER MONTH
  5. TEGRETOL [Suspect]
     Indication: EPILEPSY
     Dosage: 300 MG (150 MG THE MORNING AND 150MG IN THE EVENING)
     Route: 048
     Dates: start: 19990501
  6. TEGRETOL [Interacting]
     Dosage: 450 MG, DAILY (150 MG IN THE MORNING, INSTEAD OF 150 MG AT 2200 HRS ACCIDENTALLY 300 MG DOSE TAKEN
     Route: 048
     Dates: start: 20110913, end: 20110913

REACTIONS (7)
  - LOSS OF CONSCIOUSNESS [None]
  - FEELING DRUNK [None]
  - ACCIDENTAL OVERDOSE [None]
  - ALTERED STATE OF CONSCIOUSNESS [None]
  - RETROGRADE AMNESIA [None]
  - ANTICONVULSANT DRUG LEVEL INCREASED [None]
  - TOXICITY TO VARIOUS AGENTS [None]
